FAERS Safety Report 5448354-1 (Version None)
Quarter: 2007Q3

REPORT INFORMATION
  Report Type: 
  Country: None (occurrence: None)
  Receive Date: 20070905
  Receipt Date: 20070828
  Transmission Date: 20080115
  Serious: Yes (Hospitalization, Disabling, Other)
  Sender: FDA-Public Use
  Company Number: 163-21880-07061359

PATIENT
  Age: 77 Year
  Sex: Male

DRUGS (9)
  1. REVLIMID [Suspect]
     Indication: MYELODYSPLASTIC SYNDROME
     Dosage: 10 MG, 1 IN 1 D, ORAL
     Route: 048
     Dates: start: 20070607, end: 20070620
  2. ADVAIR DISKUS (SERETIDE MITE) [Concomitant]
  3. ALLOPURINOL [Concomitant]
  4. FLOMAX [Concomitant]
  5. GLIPIZIDE [Concomitant]
  6. NOVOLIN 70/30 (HUMAN MIXTARD) [Concomitant]
  7. PROTONIX [Concomitant]
  8. QUINAPRIL HCL [Concomitant]
  9. TYLENOL PM (TYLENOL PM) [Concomitant]

REACTIONS (6)
  - CERVICAL VERTEBRAL FRACTURE [None]
  - FACIAL BONES FRACTURE [None]
  - FALL [None]
  - HAEMOGLOBIN DECREASED [None]
  - STAPHYLOCOCCAL INFECTION [None]
  - WOUND [None]
